FAERS Safety Report 16425238 (Version 1)
Quarter: 2019Q2

REPORT INFORMATION
  Report Type: Spontaneous
  Country: US (occurrence: US)
  Receive Date: 20190613
  Receipt Date: 20190613
  Transmission Date: 20190711
  Serious: No
  Sender: FDA-Public Use
  Company Number: US-BAYER-2019-114109

PATIENT
  Age: 55 Year
  Sex: Female
  Weight: 77 kg

DRUGS (2)
  1. ALEVE [Suspect]
     Active Substance: NAPROXEN SODIUM
     Dosage: AS LABELLED
     Route: 048
     Dates: start: 201905
  2. VITAMINS NOS [Concomitant]
     Active Substance: VITAMINS

REACTIONS (4)
  - Pruritus [Recovered/Resolved]
  - Contusion [Unknown]
  - Urticaria [Recovered/Resolved]
  - Skin swelling [Unknown]

NARRATIVE: CASE EVENT DATE: 20190528
